FAERS Safety Report 7235165-X (Version None)
Quarter: 2011Q1

REPORT INFORMATION
  Report Type: 
  Country: None (occurrence: None)
  Receive Date: 20110107
  Receipt Date: 20101231
  Transmission Date: 20110831
  Serious: Yes (Other)
  Sender: FDA-Public Use
  Company Number: 2010PL000096

PATIENT
  Sex: Male

DRUGS (4)
  1. PROLEUKIN [Suspect]
     Indication: PRODUCT USED FOR UNKNOWN INDICATION
  2. PROBIOTICA [Concomitant]
  3. LIPITOR [Suspect]
     Indication: PRODUCT USED FOR UNKNOWN INDICATION
  4. MULTIVITAMINS, OTHER COMBINATIONS [Concomitant]

REACTIONS (4)
  - METASTASES TO CENTRAL NERVOUS SYSTEM [None]
  - BLOOD PRESSURE INCREASED [None]
  - BLOOD POTASSIUM DECREASED [None]
  - METASTATIC RENAL CELL CARCINOMA [None]
